FAERS Safety Report 5266016-0 (Version None)
Quarter: 2007Q1

REPORT INFORMATION
  Report Type: 
  Country: None (occurrence: None)
  Receive Date: 20070313
  Receipt Date: 20070313
  Transmission Date: 20070707
  Serious: Yes (Hospitalization, Other)
  Sender: FDA-Public Use
  Company Number: None

PATIENT
  Age: 73 Year
  Sex: Male
  Weight: 65 kg

DRUGS (2)
  1. LINEZOLID [Suspect]
     Indication: DEVICE RELATED INFECTION
     Dosage: 600MG BID PO
     Route: 048
     Dates: start: 20061222, end: 20070306
  2. LINEZOLID [Suspect]
     Indication: ENTEROCOCCAL INFECTION
     Dosage: 600MG BID PO
     Route: 048
     Dates: start: 20061222, end: 20070306

REACTIONS (3)
  - ANAEMIA [None]
  - NAUSEA [None]
  - THROMBOCYTOPENIA [None]
